FAERS Safety Report 6935174-1 (Version None)
Quarter: 2010Q3

REPORT INFORMATION
  Report Type: 
  Country: None (occurrence: None)
  Receive Date: 20100822
  Receipt Date: 20100817
  Transmission Date: 20110219
  Serious: Yes (Life-Threatening, Other)
  Sender: FDA-Public Use
  Company Number: PHHY2010JP51472

PATIENT
  Sex: Male
  Weight: 56 kg

DRUGS (11)
  1. NEORAL [Suspect]
     Indication: STEM CELL TRANSPLANT
     Dosage: 150 MG, BID
     Route: 048
     Dates: start: 20100726, end: 20100729
  2. NEORAL [Suspect]
     Indication: PROPHYLAXIS AGAINST GRAFT VERSUS HOST DISEASE
  3. CELL CEPT [Concomitant]
     Indication: STEM CELL TRANSPLANT
     Dosage: 1500 MG
     Route: 048
  4. URSO 250 [Concomitant]
     Dosage: 600 MG
     Route: 048
  5. ULCERLMIN [Concomitant]
     Dosage: 3 G
     Route: 048
  6. ITRIZOLE [Concomitant]
     Dosage: 20 ML
     Route: 048
  7. COTRIM [Concomitant]
     Dosage: 2 DF
     Route: 048
  8. FINIBAX [Concomitant]
     Dosage: 1.5 G
     Route: 042
  9. VANCOMYCIN HYDROCHLORIDE [Concomitant]
     Dosage: 1.4 G
     Route: 042
  10. SOLU-MEDROL [Concomitant]
     Dosage: 10 MG
     Route: 042
  11. STEROIDS [Concomitant]

REACTIONS (13)
  - ALANINE AMINOTRANSFERASE INCREASED [None]
  - ALTERED STATE OF CONSCIOUSNESS [None]
  - ASPARTATE AMINOTRANSFERASE INCREASED [None]
  - BLOOD ALKALINE PHOSPHATASE INCREASED [None]
  - BLOOD CREATINE PHOSPHOKINASE DECREASED [None]
  - BLOOD POTASSIUM DECREASED [None]
  - C-REACTIVE PROTEIN INCREASED [None]
  - CLONIC CONVULSION [None]
  - DEPRESSED LEVEL OF CONSCIOUSNESS [None]
  - DISORIENTATION [None]
  - DYSARTHRIA [None]
  - DYSPHAGIA [None]
  - REVERSIBLE POSTERIOR LEUKOENCEPHALOPATHY SYNDROME [None]
